FAERS Safety Report 21948545 (Version 1)
Quarter: 2023Q1

REPORT INFORMATION
  Report Type: Spontaneous
  Country: US (occurrence: US)
  Receive Date: 20230203
  Receipt Date: 20230203
  Transmission Date: 20230418
  Serious: Yes (Other)
  Sender: FDA-Public Use
  Company Number: US-BRISTOL-MYERS SQUIBB COMPANY-2023-016070

PATIENT
  Age: 78 Year
  Sex: Male
  Weight: 86.1 kg

DRUGS (1)
  1. THALOMID [Suspect]
     Active Substance: THALIDOMIDE
     Indication: Product used for unknown indication

REACTIONS (4)
  - Thrombosis [Unknown]
  - Spinal compression fracture [Unknown]
  - Herpes zoster [Unknown]
  - Sepsis [Unknown]
